FAERS Safety Report 8900858 (Version 2)
Quarter: 2013Q1

REPORT INFORMATION
  Report Type: Spontaneous
  Country: US (occurrence: US)
  Receive Date: 20121109
  Receipt Date: 20130227
  Transmission Date: 20140127
  Serious: Yes (Other)
  Sender: FDA-Public Use
  Company Number: US-BAYER-2012-115018

PATIENT
  Age: 73 Year
  Sex: Male
  Weight: 95.24 kg

DRUGS (8)
  1. ALKA-SELTZER PLUS [Suspect]
     Indication: RESPIRATORY TRACT CONGESTION
     Dosage: 2 DF, Q4HR
     Route: 048
     Dates: start: 20121030
  2. IRON [Concomitant]
  3. BAYER ASPIRIN REGIMEN ADULT LOW STRENGTH [Concomitant]
  4. METOPROLOL [Concomitant]
  5. HYDROCHLOROTHIAZIDE [Concomitant]
  6. BENAZEPRIL [Concomitant]
  7. METFORMIN [Concomitant]
  8. PRAVASTATIN [Concomitant]

REACTIONS (4)
  - Choking [Recovered/Resolved]
  - Wrong technique in drug usage process [None]
  - Retching [Recovered/Resolved]
  - Foreign body [None]
